FAERS Safety Report 7504002-8 (Version None)
Quarter: 2011Q2

REPORT INFORMATION
  Report Type: 
  Country: None (occurrence: None)
  Receive Date: 20110524
  Receipt Date: 20110524
  Transmission Date: 20111010
  Serious: Yes (Other)
  Sender: FDA-Public Use
  Company Number: None

PATIENT
  Age: 72 Year
  Sex: Female
  Weight: 83 kg

DRUGS (2)
  1. DOCETAXEL [Suspect]
     Indication: BREAST CANCER
     Dosage: 150MG X1 IV
     Route: 042
     Dates: start: 20110301
  2. DOCETAXEL [Suspect]

REACTIONS (2)
  - ERUCTATION [None]
  - CHEST DISCOMFORT [None]
